FAERS Safety Report 10618835 (Version 1)
Quarter: 2014Q4

REPORT INFORMATION
  Report Type: Spontaneous
  Country: IN (occurrence: None)
  Receive Date: 20141126
  Receipt Date: 20141126
  Transmission Date: 20150529
  Serious: Yes (Life-Threatening, Hospitalization, Other)
  Sender: FDA-Public Use
  Company Number: 2014EPC00005

PATIENT
  Age: 35 Year
  Sex: Female

DRUGS (2)
  1. AMLODIPINE [Suspect]
     Active Substance: AMLODIPINE BESYLATE
     Route: 048
  2. ATENOLOL (ATENOLOL) [Suspect]
     Active Substance: ATENOLOL
     Route: 048

REACTIONS (10)
  - Tachypnoea [None]
  - Metabolic acidosis [None]
  - Continuous haemodiafiltration [None]
  - Atrioventricular block second degree [None]
  - Tachycardia [None]
  - Acute kidney injury [None]
  - Suicide attempt [None]
  - Intentional overdose [None]
  - Depressed level of consciousness [None]
  - Hypotension [None]
